FAERS Safety Report 18438750 (Version 1)
Quarter: 2020Q4

REPORT INFORMATION
  Report Type: Spontaneous
  Country: US (occurrence: US)
  Receive Date: 20201029
  Receipt Date: 20201029
  Transmission Date: 20210114
  Serious: No
  Sender: FDA-Public Use
  Company Number: US-GW PHARMA-202010USGW03656

PATIENT

DRUGS (4)
  1. DEPAKOTE [Suspect]
     Active Substance: DIVALPROEX SODIUM
     Indication: PRODUCT USED FOR UNKNOWN INDICATION
     Dosage: 3 TABLETS, BID
     Route: 065
     Dates: end: 2020
  2. EPIDIOLEX [Suspect]
     Active Substance: CANNABIDIOL
     Indication: LENNOX-GASTAUT SYNDROME
     Dosage: 700 MILLIGRAM, BID
     Route: 048
     Dates: start: 20200725, end: 2020
  3. DEPAKOTE [Suspect]
     Active Substance: DIVALPROEX SODIUM
     Dosage: 2 TABLETS, BID
     Route: 065
     Dates: start: 2020
  4. EPIDIOLEX [Suspect]
     Active Substance: CANNABIDIOL
     Dosage: INCREASED DOSE, UNK
     Route: 048
     Dates: start: 2020

REACTIONS (6)
  - Seizure [Unknown]
  - Psychomotor hyperactivity [Unknown]
  - Sleep disorder [Unknown]
  - Drug ineffective [Unknown]
  - Hypersomnia [Unknown]
  - Insomnia [Unknown]

NARRATIVE: CASE EVENT DATE: 2020
